FAERS Safety Report 14902289 (Version 1)
Quarter: 2018Q2

REPORT INFORMATION
  Report Type: Report from Study
  Country: US (occurrence: US)
  Receive Date: 20180516
  Receipt Date: 20180516
  Transmission Date: 20180711
  Serious: Yes (Death, Other)
  Sender: FDA-Public Use
  Company Number: US-SHIRE-US201818873

PATIENT
  Sex: Female

DRUGS (1)
  1. ALFA 1-ANTITRYPSIN; RECOMBINANT [Suspect]
     Active Substance: .ALPHA.1-PROTEINASE INHIBITOR HUMAN
     Indication: ALPHA-1 ANTI-TRYPSIN DEFICIENCY
     Dosage: UNK, 1X/WEEK
     Route: 050

REACTIONS (2)
  - Parkinson^s disease [Fatal]
  - Respiratory distress [Fatal]
